FAERS Safety Report 8264294-7 (Version None)
Quarter: 2012Q2

REPORT INFORMATION
  Report Type: 
  Country: None (occurrence: None)
  Receive Date: 20120406
  Receipt Date: 20120402
  Transmission Date: 20120825
  Serious: No
  Sender: FDA-Public Use
  Company Number: US-PFIZER INC-2012083712

PATIENT
  Sex: Male
  Weight: 99.773 kg

DRUGS (8)
  1. HYDROCHLOROTHIAZIDE [Concomitant]
     Indication: HYPERTENSION
     Dosage: 50 MG, DAILY
  2. CITALOPRAM [Concomitant]
     Indication: HEAD INJURY
     Dosage: 40 MG, DAILY
  3. VERAPAMIL [Concomitant]
     Indication: HYPERTENSION
     Dosage: 80 MG, 2X/DAY
  4. LYRICA [Suspect]
     Indication: BURNING SENSATION
  5. ATENOLOL [Concomitant]
     Indication: HYPERTENSION
     Dosage: 25 MG, DAILY
  6. LYRICA [Suspect]
     Indication: HYPOAESTHESIA
     Dosage: 200 MG, 2X/DAY
     Dates: start: 20120101
  7. LYRICA [Suspect]
     Indication: PARAESTHESIA
  8. LYRICA [Suspect]
     Indication: NEUROPATHY PERIPHERAL
     Dosage: 100 MG, 2X/DAY
     Dates: end: 20120101

REACTIONS (2)
  - BURNING SENSATION [None]
  - PARAESTHESIA [None]
